FAERS Safety Report 4908027-8 (Version None)
Quarter: 2006Q1

REPORT INFORMATION
  Report Type: 
  Country: None (occurrence: None)
  Receive Date: 20060210
  Receipt Date: 20060208
  Transmission Date: 20060701
  Serious: Yes (Hospitalization)
  Sender: FDA-Public Use
  Company Number: 200610539EU

PATIENT
  Age: 59 Year
  Sex: Male

DRUGS (6)
  1. NICODERM [Suspect]
     Dosage: 14MG PER DAY
     Route: 062
     Dates: start: 20051201
  2. FUROSEMIDE [Concomitant]
     Dates: start: 20060116
  3. ACETYLSALICYLIC ACID SRT [Concomitant]
     Dates: start: 20050116
  4. ANTIHYPERTENSIVES [Concomitant]
     Dates: start: 20060117
  5. ATORVASTATIN CALCIUM [Concomitant]
     Dates: start: 20060116
  6. RAMIPRIL [Concomitant]
     Dates: start: 20060116

REACTIONS (6)
  - ABDOMINAL PAIN UPPER [None]
  - DRUG INEFFECTIVE [None]
  - DYSPNOEA [None]
  - MEDICATION ERROR [None]
  - OVERDOSE [None]
  - PHARYNGOLARYNGEAL PAIN [None]
